FAERS Safety Report 6890328-8 (Version None)
Quarter: 2010Q3

REPORT INFORMATION
  Report Type: 
  Country: None (occurrence: None)
  Receive Date: 20100730
  Receipt Date: 20080930
  Transmission Date: 20110219
  Serious: No
  Sender: FDA-Public Use
  Company Number: US-PFIZER INC-2006018310

PATIENT
  Sex: Female
  Weight: 71.67 kg

DRUGS (14)
  1. LIPITOR [Suspect]
     Indication: BLOOD CHOLESTEROL INCREASED
     Route: 065
  2. LIPITOR [Suspect]
     Indication: HYPERTENSION
  3. LIPITOR [Suspect]
     Indication: MYOCARDIAL INFARCTION
  4. ATENOLOL [Concomitant]
  5. LISINOPRIL [Concomitant]
  6. SYNTHROID [Concomitant]
  7. LOMOTIL [Concomitant]
  8. TIGAN [Concomitant]
  9. TRAZODONE [Concomitant]
  10. ALPRAZOLAM [Concomitant]
  11. AMBIEN [Concomitant]
  12. ACETYLSALICYLIC ACID SRT [Concomitant]
  13. NITRO-DUR [Concomitant]
     Route: 062
  14. NITROSTAT [Concomitant]

REACTIONS (9)
  - ABDOMINAL DISCOMFORT [None]
  - ABDOMINAL PAIN UPPER [None]
  - ARTHRITIS [None]
  - BLOOD CREATININE INCREASED [None]
  - FLATULENCE [None]
  - LIVER FUNCTION TEST ABNORMAL [None]
  - PAIN [None]
  - RENAL DISORDER [None]
  - WRONG TECHNIQUE IN DRUG USAGE PROCESS [None]
